FAERS Safety Report 8494303-1 (Version None)
Quarter: 2012Q2

REPORT INFORMATION
  Report Type: 
  Country: None (occurrence: None)
  Receive Date: 20120628
  Receipt Date: 20120620
  Transmission Date: 20120825
  Serious: Yes (Hospitalization)
  Sender: FDA-Public Use
  Company Number: 2012SP029519

PATIENT
  Age: 78 Year
  Sex: Female

DRUGS (2)
  1. HEPARIN SODIUM [Suspect]
     Indication: HEART VALVE REPLACEMENT
     Dosage: IV
     Route: 042
     Dates: start: 20120423, end: 20120512
  2. ORGARAN [Suspect]
     Indication: PRODUCT USED FOR UNKNOWN INDICATION
     Dosage: IV
     Route: 042
     Dates: start: 20120512, end: 20120515

REACTIONS (2)
  - HEPARIN-INDUCED THROMBOCYTOPENIA [None]
  - CONDITION AGGRAVATED [None]
